FAERS Safety Report 5965076-9 (Version None)
Quarter: 2008Q4

REPORT INFORMATION
  Report Type: 
  Country: None (occurrence: None)
  Receive Date: 20081125
  Receipt Date: 20081117
  Transmission Date: 20090506
  Serious: Yes (Other)
  Sender: FDA-Public Use
  Company Number: PHHY2008US29172

PATIENT

DRUGS (2)
  1. EXFORGE [Suspect]
  2. DIOVAN HCT [Concomitant]
     Indication: HYPERTENSION

REACTIONS (2)
  - DIZZINESS [None]
  - LOSS OF CONSCIOUSNESS [None]
